FAERS Safety Report 25011718 (Version 1)
Quarter: 2025Q1

REPORT INFORMATION
  Report Type: Spontaneous
  Country: US (occurrence: US)
  Receive Date: 20250226
  Receipt Date: 20250226
  Transmission Date: 20250408
  Serious: No
  Sender: TEVA
  Company Number: US-TEVA-VS-3295928

PATIENT
  Age: 75 Year
  Sex: Female
  Weight: 51.71 kg

DRUGS (1)
  1. AUSTEDO XR [Suspect]
     Active Substance: DEUTETRABENAZINE
     Indication: Hepato-lenticular degeneration
     Route: 048

REACTIONS (5)
  - Product dose omission issue [Unknown]
  - Tremor [Unknown]
  - Dysphagia [Unknown]
  - Speech disorder [Unknown]
  - Product use in unapproved indication [Unknown]
